FAERS Safety Report 24649576 (Version 1)
Quarter: 2024Q4

REPORT INFORMATION
  Report Type: Spontaneous
  Country: LK (occurrence: LK)
  Receive Date: 20241121
  Receipt Date: 20241121
  Transmission Date: 20250115
  Serious: Yes (Other)
  Sender: PRINSTON PHARMACEUTICAL
  Company Number: LK-PRINSTON PHARMACEUTICAL INC.-2024PRN00422

PATIENT
  Age: 53 Year
  Sex: Female

DRUGS (1)
  1. DOXYCYCLINE HYCLATE [Suspect]
     Active Substance: DOXYCYCLINE HYCLATE
     Dosage: 200 MG, 1X/DAY

REACTIONS (1)
  - Hepatic encephalopathy [Unknown]
